FAERS Safety Report 9797071 (Version 3)
Quarter: 2014Q1

REPORT INFORMATION
  Report Type: Spontaneous
  Country: AR (occurrence: AR)
  Receive Date: 20140105
  Receipt Date: 20140127
  Transmission Date: 20141002
  Serious: Yes (Death, Hospitalization)
  Sender: FDA-Public Use
  Company Number: AR-PFIZER INC-2014000758

PATIENT
  Age: 59 Year
  Sex: Female

DRUGS (1)
  1. XALKORI [Suspect]
     Indication: LUNG ADENOCARCINOMA STAGE IV
     Dosage: 250 MG, 2X/DAY
     Route: 048
     Dates: start: 20130812, end: 201311

REACTIONS (7)
  - Disease progression [Fatal]
  - Lung adenocarcinoma stage IV [Fatal]
  - Coma [Unknown]
  - Convulsion [Unknown]
  - Headache [Unknown]
  - Vomiting [Unknown]
  - Balance disorder [Unknown]
